FAERS Safety Report 8621577-6 (Version None)
Quarter: 2012Q3

REPORT INFORMATION
  Report Type: 
  Country: None (occurrence: None)
  Receive Date: 20120820
  Receipt Date: 20120820
  Transmission Date: 20120928
  Serious: Yes (Other)
  Sender: FDA-Public Use
  Company Number: None

PATIENT
  Age: 45 Year
  Sex: Male
  Weight: 183.7068 kg

DRUGS (2)
  1. DICLOFENAC SODIUM [Suspect]
     Indication: PAIN
     Dosage: 75MG TWICE A DAY PO
     Route: 048
     Dates: start: 20120701, end: 20120709
  2. LISINOPRIL AND HYDROCHLOROTHIAZIDE [Suspect]
     Indication: HYPERTENSION
     Dosage: 20/12.5 ONE DAILY PO
     Route: 048
     Dates: start: 20090206, end: 20120816

REACTIONS (4)
  - DEHYDRATION [None]
  - DRUG INTERACTION [None]
  - HYPERHIDROSIS [None]
  - DISTURBANCE IN ATTENTION [None]
